FAERS Safety Report 8094102-9 (Version None)
Quarter: 2012Q1

REPORT INFORMATION
  Report Type: 
  Country: None (occurrence: None)
  Receive Date: 20120131
  Receipt Date: 20120125
  Transmission Date: 20120608
  Serious: Yes (Life-Threatening, Hospitalization)
  Sender: FDA-Public Use
  Company Number: PHHO2011DE16308

PATIENT
  Sex: Male
  Weight: 184 kg

DRUGS (12)
  1. ENALAPRIL [Suspect]
     Indication: CARDIAC FAILURE
     Dosage: UNK
     Route: 048
     Dates: start: 20091120, end: 20101025
  2. ALISKIREN [Suspect]
     Dosage: UNK
     Route: 048
     Dates: start: 20101027, end: 20110926
  3. DIGITOXIN TAB [Concomitant]
     Indication: CARDIAC FAILURE CHRONIC
     Dosage: 0.07 MG, BID
     Route: 048
     Dates: start: 20050301
  4. XIPAMIDE [Concomitant]
     Indication: CARDIAC FAILURE CHRONIC
     Dosage: 10 MG, BID
     Route: 048
     Dates: start: 20090501, end: 20110925
  5. PARICALCITOL [Concomitant]
     Indication: HYPERPARATHYROIDISM
     Dosage: UNK
     Dates: start: 20100325, end: 20110925
  6. ENALAPRIL [Suspect]
     Dosage: UNK
     Route: 048
     Dates: start: 20101027, end: 20110926
  7. ALISKIREN [Suspect]
     Indication: CARDIAC FAILURE
     Dosage: UNK
     Route: 048
     Dates: start: 20091120, end: 20101025
  8. ENALAPRIL [Suspect]
     Dosage: UNK
     Route: 048
     Dates: start: 20111008
  9. METOPROLOL TARTRATE AND HYDROCHLOROTHIAZIDE [Concomitant]
     Indication: CARDIAC FAILURE CHRONIC
     Dosage: 200 MG, BID
     Route: 048
     Dates: start: 20080331, end: 20110925
  10. TORSEMIDE [Concomitant]
     Indication: CARDIAC FAILURE CHRONIC
     Dosage: 45 MG, BID
     Route: 048
     Dates: start: 20091020, end: 20110925
  11. ALLOPURINOL [Concomitant]
     Indication: HYPERURICAEMIA
     Dosage: 100 MG, BID
     Route: 048
     Dates: start: 20100325, end: 20110925
  12. ALISKIREN [Suspect]
     Dosage: UNK
     Route: 048
     Dates: start: 20111008

REACTIONS (2)
  - APPENDICITIS PERFORATED [None]
  - APPENDICITIS [None]
